FAERS Safety Report 25643528 (Version 2)
Quarter: 2025Q3

REPORT INFORMATION
  Report Type: Spontaneous
  Country: JP (occurrence: JP)
  Receive Date: 20250805
  Receipt Date: 20250814
  Transmission Date: 20251020
  Serious: Yes (Other)
  Sender: SANOFI AVENTIS
  Company Number: JP-MLMSERVICE-20250728-PI590215-00338-2

PATIENT
  Age: 61 Year
  Sex: Male
  Weight: 94.7 kg

DRUGS (5)
  1. ZOLPIDEM TARTRATE [Suspect]
     Active Substance: ZOLPIDEM TARTRATE
  2. TRICHLORMETHIAZIDE [Concomitant]
     Active Substance: TRICHLORMETHIAZIDE
  3. AMLODIPINE BESYLATE [Concomitant]
     Active Substance: AMLODIPINE BESYLATE
  4. ATORVASTATIN CALCIUM [Concomitant]
     Active Substance: ATORVASTATIN CALCIUM
  5. MINOXIDIL [Concomitant]
     Active Substance: MINOXIDIL
     Indication: Androgenetic alopecia
     Route: 048

REACTIONS (1)
  - Feeling abnormal [Recovered/Resolved]
